FAERS Safety Report 25034866 (Version 1)
Quarter: 2025Q1

REPORT INFORMATION
  Report Type: Spontaneous
  Country: CA (occurrence: CA)
  Receive Date: 20250304
  Receipt Date: 20250304
  Transmission Date: 20250409
  Serious: Yes (Other)
  Sender: CELLTRION
  Company Number: CA-PFIZER INC-PV202300163537

PATIENT

DRUGS (11)
  1. INFLECTRA [Suspect]
     Active Substance: INFLIXIMAB-DYYB
     Indication: Crohn^s disease
     Route: 042
     Dates: start: 20220325
  2. INFLECTRA [Suspect]
     Active Substance: INFLIXIMAB-DYYB
     Dates: start: 20230929
  3. INFLECTRA [Suspect]
     Active Substance: INFLIXIMAB-DYYB
     Dates: start: 20231117
  4. INFLECTRA [Suspect]
     Active Substance: INFLIXIMAB-DYYB
     Dates: start: 20231229
  5. INFLECTRA [Suspect]
     Active Substance: INFLIXIMAB-DYYB
     Dates: start: 20240209
  6. INFLECTRA [Suspect]
     Active Substance: INFLIXIMAB-DYYB
  7. INFLECTRA [Suspect]
     Active Substance: INFLIXIMAB-DYYB
  8. INFLECTRA [Suspect]
     Active Substance: INFLIXIMAB-DYYB
  9. INFLECTRA [Suspect]
     Active Substance: INFLIXIMAB-DYYB
  10. INFLECTRA [Suspect]
     Active Substance: INFLIXIMAB-DYYB
  11. INFLECTRA [Suspect]
     Active Substance: INFLIXIMAB-DYYB
     Dates: start: 20250110

REACTIONS (16)
  - Arthralgia [Not Recovered/Not Resolved]
  - Pneumonia [Recovered/Resolved]
  - Haematochezia [Unknown]
  - Faeces hard [Unknown]
  - Pain [Recovering/Resolving]
  - Influenza like illness [Unknown]
  - Nasal congestion [Unknown]
  - Eye irritation [Unknown]
  - Palpitations [Not Recovered/Not Resolved]
  - Sciatic nerve neuropathy [Not Recovered/Not Resolved]
  - Exercise tolerance decreased [Unknown]
  - Fall [Unknown]
  - Oedema peripheral [Not Recovered/Not Resolved]
  - Nasal discharge discolouration [Recovered/Resolved]
  - Muscular weakness [Not Recovered/Not Resolved]
  - Condition aggravated [Unknown]

NARRATIVE: CASE EVENT DATE: 20230101
